FAERS Safety Report 4786617-3 (Version None)
Quarter: 2005Q3

REPORT INFORMATION
  Report Type: 
  Country: None (occurrence: None)
  Receive Date: 20050927
  Receipt Date: 20050624
  Transmission Date: 20060218
  Serious: No
  Sender: FDA-Public Use
  Company Number: USA0506101303

PATIENT
  Age: 31 Year
  Sex: Female

DRUGS (3)
  1. STRATTERA [Suspect]
     Indication: ATTENTION DEFICIT/HYPERACTIVITY DISORDER
     Dosage: 120 MG
     Dates: start: 20040301
  2. CELEXA [Concomitant]
  3. SEASONALE [Concomitant]

REACTIONS (1)
  - PRESCRIBED OVERDOSE [None]
